FAERS Safety Report 21383289 (Version 1)
Quarter: 2022Q3

REPORT INFORMATION
  Report Type: Report from Study
  Country: US (occurrence: US)
  Receive Date: 20220927
  Receipt Date: 20220927
  Transmission Date: 20221027
  Serious: Yes (Other)
  Sender: FDA-Public Use
  Company Number: US-GILEAD-2022-0599163

PATIENT
  Age: 67 Year
  Sex: Male

DRUGS (1)
  1. IDELALISIB [Suspect]
     Active Substance: IDELALISIB
     Indication: Non-Hodgkin^s lymphoma
     Dosage: 150 MG, QD
     Route: 065
     Dates: start: 20220129

REACTIONS (3)
  - Lymphoma [Not Recovered/Not Resolved]
  - Abdominal neoplasm [Not Recovered/Not Resolved]
  - Off label use [Not Recovered/Not Resolved]

NARRATIVE: CASE EVENT DATE: 20220129
